FAERS Safety Report 5034187-7 (Version None)
Quarter: 2006Q2

REPORT INFORMATION
  Report Type: 
  Country: None (occurrence: None)
  Receive Date: 20060626
  Receipt Date: 20060615
  Transmission Date: 20061013
  Serious: Yes (Other)
  Sender: FDA-Public Use
  Company Number: PAR-3901

PATIENT
  Age: 53 Year
  Sex: Male
  Weight: 109.1 kg

DRUGS (3)
  1. PAROXETINE HCL [Suspect]
     Dosage: 40MG PER DAY
     Route: 048
     Dates: start: 20050101, end: 20060201
  2. METOPROLOL TARTRATE [Concomitant]
     Indication: HYPERTENSION
     Dosage: 100MG TWICE PER DAY
     Route: 048
  3. TERAZOSIN HCL [Concomitant]
     Indication: PROSTATIC DISORDER
     Dosage: 5MG TWICE PER DAY
     Route: 048

REACTIONS (11)
  - ABASIA [None]
  - ANXIETY [None]
  - DISTURBANCE IN ATTENTION [None]
  - EATING DISORDER [None]
  - EMOTIONAL DISTRESS [None]
  - FORMICATION [None]
  - MIGRAINE [None]
  - PSYCHOTIC DISORDER [None]
  - RESTLESSNESS [None]
  - SELF MUTILATION [None]
  - THINKING ABNORMAL [None]
